FAERS Safety Report 17862513 (Version 1)
Quarter: 2020Q2

REPORT INFORMATION
  Report Type: Spontaneous
  Country: US (occurrence: US)
  Receive Date: 20200604
  Receipt Date: 20200604
  Transmission Date: 20200714
  Serious: No
  Sender: FDA-Public Use
  Company Number: US-FOUNDATIONCONSUMERHC-2020-US-003218

PATIENT
  Sex: Female

DRUGS (1)
  1. TAKE ACTION [Suspect]
     Active Substance: LEVONORGESTREL
     Indication: POST COITAL CONTRACEPTION
     Dosage: 1.5MG ONE TIME
     Route: 048
     Dates: start: 20200110, end: 20200110

REACTIONS (5)
  - Abdominal pain upper [Unknown]
  - Vaginal haemorrhage [Unknown]
  - Emotional disorder [Unknown]
  - Dysmenorrhoea [Unknown]
  - Menstruation delayed [Unknown]

NARRATIVE: CASE EVENT DATE: 202002
